FAERS Safety Report 10032590 (Version 26)
Quarter: 2016Q2

REPORT INFORMATION
  Report Type: Report from Study
  Country: CA (occurrence: CA)
  Receive Date: 20140324
  Receipt Date: 20160616
  Transmission Date: 20160815
  Serious: Yes (Death, Other)
  Sender: FDA-Public Use
  Company Number: PHHY2013CA125843

PATIENT
  Age: 59 Year
  Sex: Male
  Weight: 89.8 kg

DRUGS (3)
  1. SANDOSTATIN [Suspect]
     Active Substance: OCTREOTIDE ACETATE
     Indication: NEUROENDOCRINE TUMOUR
     Dosage: UNK MCG TID (CONTINUED FOR 1 MORE WEEK)
     Route: 058
     Dates: start: 20130919, end: 20131017
  2. SANDOSTATIN LAR DEPOT [Suspect]
     Active Substance: OCTREOTIDE ACETATE
     Dosage: 30 MG, QMO (EVERY 4 WEEKS)
     Route: 030
     Dates: end: 20160211
  3. SANDOSTATIN LAR DEPOT [Suspect]
     Active Substance: OCTREOTIDE ACETATE
     Indication: NEUROENDOCRINE TUMOUR
     Dosage: 20 MG, QMO (EVERY 4 WEEKS)
     Route: 030
     Dates: start: 20131004

REACTIONS (49)
  - Fatigue [Recovering/Resolving]
  - Hepatic cirrhosis [Unknown]
  - Erythema [Unknown]
  - Wheezing [Not Recovered/Not Resolved]
  - Diarrhoea [Recovering/Resolving]
  - Carcinoid tumour [Unknown]
  - Night sweats [Unknown]
  - Dyspnoea [Unknown]
  - Abdominal tenderness [Recovered/Resolved]
  - Gastrointestinal pain [Unknown]
  - Metastases to lung [Unknown]
  - Incision site infection [Unknown]
  - Hyperhidrosis [Recovered/Resolved]
  - Hepatic enzyme increased [Unknown]
  - Weight decreased [Unknown]
  - Blood bilirubin increased [Not Recovered/Not Resolved]
  - Hiccups [Recovered/Resolved]
  - Chest discomfort [Unknown]
  - Glucose urine [Unknown]
  - Nausea [Recovering/Resolving]
  - Incision site abscess [Unknown]
  - Carcinoid crisis [Unknown]
  - Frequent bowel movements [Unknown]
  - Abdominal neoplasm [Unknown]
  - Intestinal obstruction [Unknown]
  - Extrasystoles [Unknown]
  - Malaise [Unknown]
  - Splenomegaly [Unknown]
  - Flatulence [Unknown]
  - Tachycardia [Unknown]
  - Abdominal discomfort [Unknown]
  - Blood pressure increased [Unknown]
  - Malignant neoplasm progression [Unknown]
  - Flushing [Unknown]
  - Asthenia [Unknown]
  - Heart rate irregular [Unknown]
  - Radiation pneumonitis [Unknown]
  - Splenic infarction [Unknown]
  - Cough [Recovered/Resolved]
  - Ascites [Unknown]
  - Heart rate increased [Unknown]
  - Abdominal distension [Unknown]
  - Blood alkaline phosphatase increased [Unknown]
  - Death [Fatal]
  - Lymphadenopathy [Unknown]
  - Cough [Not Recovered/Not Resolved]
  - Abdominal pain [Unknown]
  - Vomiting [Recovering/Resolving]
  - Gamma-glutamyltransferase increased [Unknown]

NARRATIVE: CASE EVENT DATE: 20131018
